FAERS Safety Report 6466256-9 (Version None)
Quarter: 2009Q4

REPORT INFORMATION
  Report Type: 
  Country: None (occurrence: None)
  Receive Date: 20091202
  Receipt Date: 20091119
  Transmission Date: 20100525
  Serious: Yes (Other)
  Sender: FDA-Public Use
  Company Number: JP-ROCHE-643231

PATIENT
  Sex: Female

DRUGS (7)
  1. PEG-INTERFERON ALFA 2A (RO 25-8310) [Suspect]
     Route: 058
     Dates: start: 20080307
  2. RIBAVIRIN [Suspect]
     Route: 048
     Dates: start: 20080307, end: 20080402
  3. RIBAVIRIN [Suspect]
     Route: 048
     Dates: start: 20080403, end: 20080721
  4. RIBAVIRIN [Suspect]
     Route: 048
     Dates: start: 20080722
  5. URSO 250 [Concomitant]
     Dosage: FORM: ORAL FORMULATION.
     Route: 048
  6. 2-AMINOETHANESULPHONIC ACID [Concomitant]
     Route: 048
  7. ANTEBATE [Concomitant]
     Route: 061
     Dates: start: 20080815

REACTIONS (7)
  - AMYOTROPHIC LATERAL SCLEROSIS [None]
  - ANAEMIA [None]
  - BLOOD ALBUMIN DECREASED [None]
  - BLOOD CREATINE PHOSPHOKINASE INCREASED [None]
  - MONOCYTE COUNT INCREASED [None]
  - PLATELET COUNT DECREASED [None]
  - WHITE BLOOD CELL COUNT DECREASED [None]
